FAERS Safety Report 4869582-X (Version None)
Quarter: 2005Q4

REPORT INFORMATION
  Report Type: 
  Country: None (occurrence: None)
  Receive Date: 20051227
  Receipt Date: 20051221
  Transmission Date: 20060501
  Serious: Yes (Hospitalization, Other)
  Sender: FDA-Public Use
  Company Number: HQWYE127422DEC05

PATIENT
  Age: 51 Year
  Sex: Male

DRUGS (7)
  1. RAPAMUNE [Suspect]
     Indication: PROPHYLAXIS AGAINST TRANSPLANT REJECTION
     Dosage: 4 MG 1X PER 1 DAY ORAL
     Route: 048
     Dates: start: 20050824
  2. CYCLOSPORINE [Concomitant]
  3. PREDNISONE [Concomitant]
  4. CIPROFIBRATE (CIPROFIBRATE) [Concomitant]
  5. RANITIDINE [Concomitant]
  6. LEVOFLOXACIN [Concomitant]
  7. WARFARIN SODIUM [Concomitant]

REACTIONS (4)
  - BLOOD LACTATE DEHYDROGENASE INCREASED [None]
  - CHEST PAIN [None]
  - ELECTROCARDIOGRAM ST SEGMENT ABNORMAL [None]
  - INTERNATIONAL NORMALISED RATIO DECREASED [None]
